FAERS Safety Report 5338187-9 (Version None)
Quarter: 2007Q2

REPORT INFORMATION
  Report Type: 
  Country: None (occurrence: None)
  Receive Date: 20070530
  Receipt Date: 20070524
  Transmission Date: 20071010
  Serious: Yes (Life-Threatening, Other)
  Sender: FDA-Public Use
  Company Number: DE-BRISTOL-MYERS SQUIBB COMPANY-13787239

PATIENT
  Age: 71 Year
  Sex: Male
  Weight: 83 kg

DRUGS (4)
  1. SPRYCEL [Suspect]
     Indication: CHRONIC MYELOID LEUKAEMIA
     Dates: start: 20070121, end: 20070222
  2. MARCUMAR [Concomitant]
     Indication: PULMONARY EMBOLISM
  3. GLEEVEC [Concomitant]
     Indication: CHRONIC MYELOID LEUKAEMIA
     Dates: start: 20030627
  4. ALEXAN [Concomitant]
     Indication: CHRONIC MYELOID LEUKAEMIA
     Dates: start: 20070114

REACTIONS (7)
  - ABDOMINAL PAIN [None]
  - ANAEMIA [None]
  - BONE PAIN [None]
  - DRUG ERUPTION [None]
  - HYPERKERATOSIS [None]
  - PLEURAL EFFUSION [None]
  - WEIGHT DECREASED [None]
